FAERS Safety Report 16745489 (Version 15)
Quarter: 2020Q1

REPORT INFORMATION
  Report Type: Spontaneous
  Country: US (occurrence: US)
  Receive Date: 20190827
  Receipt Date: 20200311
  Transmission Date: 20200409
  Serious: Yes (Other)
  Sender: FDA-Public Use
  Company Number: US-PFIZER INC-2019367773

PATIENT
  Age: 82 Year
  Sex: Female
  Weight: 51 kg

DRUGS (1)
  1. XALKORI [Suspect]
     Active Substance: CRIZOTINIB
     Indication: LUNG NEOPLASM MALIGNANT
     Dosage: 250 MG, 2X/DAY
     Dates: start: 20190826

REACTIONS (11)
  - Neoplasm progression [Unknown]
  - Oedema peripheral [Unknown]
  - Ageusia [Not Recovered/Not Resolved]
  - Heart rate decreased [Unknown]
  - Hypoacusis [Unknown]
  - Peripheral swelling [Unknown]
  - Bronchitis bacterial [Unknown]
  - Dyspnoea [Unknown]
  - Eating disorder [Not Recovered/Not Resolved]
  - Blood count abnormal [Unknown]
  - Hypotension [Unknown]

NARRATIVE: CASE EVENT DATE: 2019
